FAERS Safety Report 9668653 (Version 2)
Quarter: 2013Q4

REPORT INFORMATION
  Report Type: Spontaneous
  Country: GB (occurrence: GB)
  Receive Date: 20131105
  Receipt Date: 20131105
  Transmission Date: 20140711
  Serious: Yes (Hospitalization)
  Sender: FDA-Public Use
  Company Number: GB-DRREDDYS-GER/UKI/13/0030464

PATIENT
  Age: 51 Year
  Sex: 0

DRUGS (7)
  1. LEVOFLOXACIN [Suspect]
     Indication: PNEUMONIA
     Route: 048
     Dates: start: 20110526, end: 20110602
  2. LEVOFLOXACIN [Suspect]
     Indication: PNEUMONIA
     Route: 041
     Dates: start: 20110519, end: 20110520
  3. BENZYLPENICILLIN [Suspect]
     Indication: PNEUMONIA
     Route: 041
     Dates: start: 20110518, end: 20110520
  4. CLARITHROMYCIN [Suspect]
     Indication: PNEUMONIA PNEUMOCOCCAL
     Route: 041
     Dates: start: 20110519, end: 20110525
  5. CO-AMOXICLAV [Suspect]
     Indication: PNEUMONIA PNEUMOCOCCAL
     Route: 041
     Dates: start: 20110521, end: 20110525
  6. CO-AMOXICLAV [Suspect]
     Route: 048
     Dates: start: 20110526, end: 20110601
  7. PIPERACILLIN AND TAZOBACTAM [Suspect]
     Indication: PRODUCT USED FOR UNKNOWN INDICATION
     Route: 041
     Dates: start: 20110607

REACTIONS (3)
  - Clostridium difficile infection [Unknown]
  - Diarrhoea [Unknown]
  - Respiratory arrest [Unknown]
